FAERS Safety Report 16432730 (Version 1)
Quarter: 2019Q2

REPORT INFORMATION
  Report Type: Spontaneous
  Country: US (occurrence: US)
  Receive Date: 20190614
  Receipt Date: 20190614
  Transmission Date: 20190711
  Serious: No
  Sender: FDA-Public Use
  Company Number: US-JNJFOC-20190600714

PATIENT
  Age: 69 Year
  Sex: Female

DRUGS (2)
  1. PEPCID [Suspect]
     Active Substance: FAMOTIDINE
     Indication: PRODUCT USED FOR UNKNOWN INDICATION
     Route: 065
  2. PEPCID [Suspect]
     Active Substance: FAMOTIDINE
     Route: 065

REACTIONS (7)
  - Tremor [Unknown]
  - Asthenia [Unknown]
  - Dysgeusia [Unknown]
  - Renal pain [Unknown]
  - Malaise [Unknown]
  - Tongue discolouration [Unknown]
  - Swelling [Unknown]
